FAERS Safety Report 25990836 (Version 1)
Quarter: 2025Q4

REPORT INFORMATION
  Report Type: Spontaneous
  Country: BR (occurrence: BR)
  Receive Date: 20251103
  Receipt Date: 20251103
  Transmission Date: 20260119
  Serious: Yes (Other)
  Sender: ESPERION THERAPEUTICS
  Company Number: BR-DAIICHI SANKYO EUROPE GMBH-DS-2025-171962-BR

PATIENT

DRUGS (1)
  1. BEMPEDOIC ACID\EZETIMIBE [Suspect]
     Active Substance: BEMPEDOIC ACID\EZETIMIBE
     Indication: Product used for unknown indication
     Dosage: UNK (USED 20 PILLS)
     Route: 065

REACTIONS (5)
  - Malaise [Unknown]
  - Vomiting [Unknown]
  - Yellow skin [Unknown]
  - Food intolerance [Unknown]
  - Abdominal pain [Unknown]
